FAERS Safety Report 12845940 (Version 1)
Quarter: 2016Q4

REPORT INFORMATION
  Report Type: Report from Study
  Country: US (occurrence: US)
  Receive Date: 20161014
  Receipt Date: 20161014
  Transmission Date: 20170207
  Serious: No
  Sender: FDA-Public Use
  Company Number: US-AMGEN-USASL2016138613

PATIENT
  Age: 39 Year
  Sex: Female

DRUGS (11)
  1. CARAFATE [Concomitant]
     Active Substance: SUCRALFATE
     Dosage: 100 MG, UNK
  2. PAXIL [Concomitant]
     Active Substance: PAROXETINE HYDROCHLORIDE
     Dosage: 60 MG, UNK
  3. METOPROLOL. [Concomitant]
     Active Substance: METOPROLOL
     Dosage: 100 MG, UNK
  4. PREDNISONE. [Suspect]
     Active Substance: PREDNISONE
     Indication: LETHARGY
     Dosage: 160 MG, TID
     Route: 065
     Dates: start: 2016
  5. PREDNISONE. [Suspect]
     Active Substance: PREDNISONE
     Indication: DYSARTHRIA
  6. PREDNISONE. [Suspect]
     Active Substance: PREDNISONE
     Indication: EYE DISORDER
  7. DEXILANT [Concomitant]
     Active Substance: DEXLANSOPRAZOLE
     Dosage: 50 MG, UNK
  8. METHOTREXATE. [Concomitant]
     Active Substance: METHOTREXATE
  9. NORTRIPTYLINE [Concomitant]
     Active Substance: NORTRIPTYLINE
     Dosage: 50 MG, UNK
  10. ENBREL [Suspect]
     Active Substance: ETANERCEPT
     Indication: RHEUMATOID ARTHRITIS
     Dosage: 50 MG, QWK
     Route: 065
     Dates: start: 20160405, end: 2016
  11. PREDNISONE. [Suspect]
     Active Substance: PREDNISONE
     Indication: SLEEP DISORDER

REACTIONS (2)
  - Lethargy [Recovered/Resolved]
  - Dysarthria [Unknown]

NARRATIVE: CASE EVENT DATE: 2016
